FAERS Safety Report 9508726 (Version 1)
Quarter: 2013Q1

REPORT INFORMATION
  Report Type: Spontaneous
  Country: US (occurrence: None)
  Receive Date: 20130305
  Receipt Date: 20130305
  Transmission Date: 20140127
  Serious: Yes (Other)
  Sender: FDA-Public Use
  Company Number: 163-21880-11050880

PATIENT
  Age: 63 Year
  Sex: Female
  Weight: 62.6 kg

DRUGS (8)
  1. REVLIMID (LENALIDOMIDE) (25 MILLIGRAM, CAPSULES) [Suspect]
     Indication: PLASMA CELL MYELOMA
     Dosage: 25 MG, 21 IN 21 D, PO
     Route: 048
     Dates: start: 20091121
  2. CALCIUM [Concomitant]
  3. LISINOPRIL [Concomitant]
  4. ZOMETA (ZOLEDRONIC ACID) [Concomitant]
  5. VELCADE (BORTEZOMIB) [Concomitant]
  6. DECADRON (DEXAMETHASONE) [Concomitant]
  7. MULTIVITAMIN (MULTIVITAMINS) [Concomitant]
  8. OMEGA-3 (OMEGA-3 TRIGLYCERIDES) [Concomitant]

REACTIONS (4)
  - Diarrhoea [None]
  - Abdominal pain [None]
  - Back pain [None]
  - White blood cell count decreased [None]
